FAERS Safety Report 9989254 (Version 1)
Quarter: 2014Q1

REPORT INFORMATION
  Report Type: Spontaneous
  Country: US (occurrence: US)
  Receive Date: 20140310
  Receipt Date: 20140310
  Transmission Date: 20141002
  Serious: Yes (Death, Hospitalization, Other)
  Sender: FDA-Public Use
  Company Number: US-JNJFOC-20140304816

PATIENT
  Sex: Male

DRUGS (1)
  1. XARELTO [Suspect]
     Indication: DEEP VEIN THROMBOSIS
     Route: 048
     Dates: end: 201403

REACTIONS (5)
  - Sepsis [Fatal]
  - Renal failure [Fatal]
  - Haemorrhage [Unknown]
  - Hypotension [Unknown]
  - Incorrect dose administered [Unknown]
